FAERS Safety Report 15242188 (Version 1)
Quarter: 2018Q3

REPORT INFORMATION
  Report Type: Other
  Country: IN (occurrence: IN)
  Receive Date: 20180806
  Receipt Date: 20180806
  Transmission Date: 20181010
  Serious: Yes (Hospitalization)
  Sender: FDA-Public Use
  Company Number: IN-AJANTA PHARMA USA INC.-2053259

PATIENT
  Age: 60 Year
  Sex: Female

DRUGS (7)
  1. OXCARBAZEPINE. [Concomitant]
     Active Substance: OXCARBAZEPINE
  2. RISPERIDONE. [Suspect]
     Active Substance: RISPERIDONE
  3. CITICOLINE [Suspect]
     Active Substance: CITICOLINE
  4. CLOBAZAM [Concomitant]
     Active Substance: CLOBAZAM
  5. PIRACETAM [Suspect]
     Active Substance: PIRACETAM
  6. OLMESARTAN MEDOXOMIL. [Concomitant]
     Active Substance: OLMESARTAN MEDOXOMIL
  7. DONEPEZIL. [Suspect]
     Active Substance: DONEPEZIL

REACTIONS (2)
  - Drug interaction [Recovered/Resolved]
  - Neuroleptic malignant syndrome [Recovered/Resolved]
